FAERS Safety Report 7534050-3 (Version None)
Quarter: 2011Q2

REPORT INFORMATION
  Report Type: 
  Country: None (occurrence: None)
  Receive Date: 20110608
  Receipt Date: 20060907
  Transmission Date: 20111010
  Serious: Yes (Death)
  Sender: FDA-Public Use
  Company Number: PHMT2006CA01170

PATIENT
  Sex: Male

DRUGS (2)
  1. RISPERDAL [Concomitant]
     Dosage: 3 MG, QD
     Route: 048
  2. CLOZAPINE [Suspect]
     Indication: SCHIZOAFFECTIVE DISORDER
     Dosage: 125 MG, QD
     Route: 048
     Dates: start: 20030206

REACTIONS (1)
  - DEATH [None]
